FAERS Safety Report 6274892-8 (Version None)
Quarter: 2009Q3

REPORT INFORMATION
  Report Type: 
  Country: None (occurrence: None)
  Receive Date: 20090721
  Receipt Date: 20070529
  Transmission Date: 20100115
  Serious: Yes (Other)
  Sender: FDA-Public Use
  Company Number: US-ASTRAZENECA-2006UW24344

PATIENT
  Age: 18799 Day
  Sex: Male
  Weight: 64.4 kg

DRUGS (15)
  1. SEROQUEL [Suspect]
     Indication: DEPRESSION
     Route: 048
     Dates: start: 20030801
  2. SEROQUEL [Suspect]
     Indication: ANXIETY
     Route: 048
     Dates: start: 20030801
  3. SEROQUEL [Suspect]
     Dosage: 100 MG - 600 MG
     Route: 048
     Dates: start: 20030826
  4. SEROQUEL [Suspect]
     Dosage: 100 MG - 600 MG
     Route: 048
     Dates: start: 20030826
  5. ZYPREXA [Suspect]
  6. PRILOSEC [Concomitant]
     Indication: GASTROOESOPHAGEAL REFLUX DISEASE
     Dates: start: 20001029
  7. AMBIEN [Concomitant]
     Indication: INSOMNIA
     Route: 048
     Dates: start: 20050314
  8. LAMICTAL [Concomitant]
     Indication: ANXIETY
     Route: 048
     Dates: start: 20070426
  9. EFFEXOR [Concomitant]
     Indication: ANXIETY
     Route: 048
     Dates: start: 20030828
  10. BUSPAR [Concomitant]
     Indication: ANXIETY
     Route: 048
     Dates: start: 20030828
  11. ATENOLOL [Concomitant]
     Dosage: 25 - 50 MG
     Route: 048
     Dates: start: 20030918
  12. HYDROCODONE 7.5/APAP 500 [Concomitant]
     Dosage: 7.5/500
     Dates: start: 20031027
  13. WELLBUTRIN [Concomitant]
     Dates: start: 20030828
  14. PLAVIX [Concomitant]
     Route: 048
     Dates: start: 20030918
  15. ALPRAZOLAM [Concomitant]
     Dates: start: 20031027

REACTIONS (2)
  - DIABETES MELLITUS [None]
  - NEUROPATHY PERIPHERAL [None]
